FAERS Safety Report 9207494 (Version 3)
Quarter: 2014Q2

REPORT INFORMATION
  Report Type: Report from Study
  Country: CH (occurrence: CH)
  Receive Date: 20130403
  Receipt Date: 20140521
  Transmission Date: 20141212
  Serious: Yes (Death, Hospitalization, Other)
  Sender: FDA-Public Use
  Company Number: CH-009507513-1304CHE000089

PATIENT
  Age: 65 Year
  Sex: Male
  Weight: 70 kg

DRUGS (8)
  1. EZETIMIBE (+) SIMVASTATIN [Suspect]
     Indication: ACUTE CORONARY SYNDROME
     Dosage: 10/40 MG
     Route: 048
     Dates: start: 20080423
  2. TOREM [Concomitant]
     Dosage: 10MG: DAILY DOSE
     Route: 048
     Dates: start: 20120110
  3. ASPIRIN [Concomitant]
     Dosage: 100MG: DAILY DOSE
     Route: 048
     Dates: start: 19950101
  4. DANCOR [Concomitant]
     Dosage: 20MG:DAILY DOSE
     Route: 048
     Dates: start: 20100404
  5. AMARYL [Concomitant]
     Dosage: 4MG; DAILY DOSE
     Route: 048
     Dates: start: 20110505
  6. CARVEDILOL [Concomitant]
     Dosage: 6.25MG; DAILY DOSE
     Route: 048
     Dates: start: 20120421
  7. OMEPRAZOLE [Concomitant]
     Dosage: 40MG:DAILY DOSE
     Route: 048
     Dates: start: 20110505
  8. CRESTOR [Concomitant]
     Dosage: 20MG: DAILY DOSE
     Route: 048
     Dates: start: 20101213

REACTIONS (1)
  - Bladder cancer [Fatal]
